FAERS Safety Report 21724496 (Version 3)
Quarter: 2023Q1

REPORT INFORMATION
  Report Type: Spontaneous
  Country: US (occurrence: US)
  Receive Date: 20221213
  Receipt Date: 20230322
  Transmission Date: 20230418
  Serious: Yes (Hospitalization, Other)
  Sender: FDA-Public Use
  Company Number: US-BIOGEN-2022BI01173092

PATIENT
  Sex: Female

DRUGS (13)
  1. TYSABRI [Suspect]
     Active Substance: NATALIZUMAB
     Indication: Multiple sclerosis
     Route: 050
     Dates: start: 20170820
  2. ALBUTEROL [Concomitant]
     Active Substance: ALBUTEROL
     Indication: Product used for unknown indication
     Dosage: 1-2 PUFFS AS NEEDED
     Route: 050
  3. ADDERALL XR [Concomitant]
     Active Substance: AMPHETAMINE ASPARTATE\AMPHETAMINE SULFATE\DEXTROAMPHETAMINE SACCHARATE\DEXTROAMPHETAMINE SULFATE
     Indication: Attention deficit hyperactivity disorder
     Route: 050
  4. ASPIRIN [Concomitant]
     Active Substance: ASPIRIN
     Indication: Deep vein thrombosis
     Route: 050
  5. VITAMIN D3 [Concomitant]
     Active Substance: CHOLECALCIFEROL
     Indication: Product used for unknown indication
     Route: 050
  6. VITAMIN D3 [Concomitant]
     Active Substance: CHOLECALCIFEROL
     Route: 050
  7. VITAMIN B12 [Concomitant]
     Active Substance: CYANOCOBALAMIN
     Indication: Product used for unknown indication
     Route: 050
  8. VALIUM [Concomitant]
     Active Substance: DIAZEPAM
     Indication: Product used for unknown indication
     Dosage: AS NEEDED
     Route: 050
  9. FLUOXETINE [Concomitant]
     Active Substance: FLUOXETINE HYDROCHLORIDE
     Indication: Depression
     Route: 050
  10. TIZANIDINE [Concomitant]
     Active Substance: TIZANIDINE
     Indication: Relapsing-remitting multiple sclerosis
     Route: 050
  11. TIZANIDINE [Concomitant]
     Active Substance: TIZANIDINE
     Route: 050
  12. ACETAMINOPHEN\HYDROCODONE [Concomitant]
     Active Substance: ACETAMINOPHEN\HYDROCODONE
     Indication: Product used for unknown indication
     Route: 050
  13. BACLOFEN [Concomitant]
     Active Substance: BACLOFEN
     Indication: Muscle spasms
     Dosage: PRN
     Route: 050

REACTIONS (14)
  - Nephrolithiasis [Recovered/Resolved]
  - Hydronephrosis [Recovered/Resolved]
  - Pyelonephritis acute [Recovered/Resolved]
  - Escherichia sepsis [Recovered/Resolved]
  - Colitis [Unknown]
  - Clostridium difficile colitis [Recovered/Resolved]
  - Septic shock [Recovered/Resolved]
  - Streptococcal sepsis [Unknown]
  - Pleural effusion [Unknown]
  - Acute respiratory failure [Recovered/Resolved]
  - Urinary tract infection [Recovered/Resolved]
  - Haematuria [Unknown]
  - SARS-CoV-2 test positive [Recovered/Resolved]
  - Hyperglycaemia [Unknown]

NARRATIVE: CASE EVENT DATE: 20220101
